FAERS Safety Report 11131160 (Version 1)
Quarter: 2015Q2

REPORT INFORMATION
  Report Type: Spontaneous
  Country: US (occurrence: None)
  Receive Date: 20150520
  Receipt Date: 20150520
  Transmission Date: 20150821
  Serious: Yes (Other)
  Sender: FDA-Public Use
  Company Number: US2015021221

PATIENT
  Age: 58 Year
  Sex: Male

DRUGS (5)
  1. CRESTOR [Concomitant]
     Active Substance: ROSUVASTATIN CALCIUM
  2. OMEGA FISH OIL (FISH OIL + TOCOPHEROL) [Concomitant]
  3. TUMS [Suspect]
     Active Substance: CALCIUM CARBONATE
     Indication: DYSPEPSIA
     Route: 048
     Dates: end: 20150211
  4. TRICOR (TRICOR (NOS)) [Concomitant]
  5. TUMS EX [Suspect]
     Active Substance: CALCIUM CARBONATE
     Indication: DYSPEPSIA
     Route: 048
     Dates: end: 20150211

REACTIONS (7)
  - Diarrhoea [None]
  - Blood calcium increased [None]
  - Vitamin D decreased [None]
  - Myalgia [None]
  - Mental impairment [None]
  - Prostatic specific antigen increased [None]
  - Nausea [None]
